FAERS Safety Report 6616491-1 (Version None)
Quarter: 2010Q1

REPORT INFORMATION
  Report Type: 
  Country: None (occurrence: None)
  Receive Date: 20100305
  Receipt Date: 20100223
  Transmission Date: 20100710
  Serious: Yes (Other)
  Sender: FDA-Public Use
  Company Number: JP-PFIZER INC-2010022694

PATIENT
  Age: 78 Year
  Sex: Male

DRUGS (1)
  1. ZITHROMAC SR [Suspect]
     Dosage: 2 G/DAY
     Route: 048
     Dates: start: 20100216

REACTIONS (1)
  - HYPOTHERMIA [None]
